FAERS Safety Report 5942744-6 (Version None)
Quarter: 2008Q4

REPORT INFORMATION
  Report Type: 
  Country: None (occurrence: None)
  Receive Date: 20081106
  Receipt Date: 20081024
  Transmission Date: 20090506
  Serious: Yes (Life-Threatening, Hospitalization)
  Sender: FDA-Public Use
  Company Number: BE-SOLVAY-00208004837

PATIENT
  Age: 33 Year
  Sex: Female

DRUGS (8)
  1. INDOMETHACIN [Concomitant]
     Indication: ILL-DEFINED DISORDER
     Dosage: DAILY DOSE: 100 MILLIGRAM(S)
     Route: 054
  2. UTROGESTAN [Suspect]
     Indication: PREMATURE LABOUR
     Dosage: DAILY DOSE: 400 MILLIGRAM(S)
     Route: 048
  3. ATOSIBAN [Suspect]
     Indication: PREMATURE LABOUR
     Dosage: DAILY DOSE: 6.75 MILLIGRAM(S) OVER 1 MINUTE
     Route: 040
  4. ATOSIBAN [Suspect]
     Dosage: DAILY DOSE: 300 MICROGRAMS/ MIN FOR A TOTAL OF 54000 MICROGRAMS OVER THREE HOURS
     Route: 041
  5. ATOSIBAN [Suspect]
     Dosage: DAILY DOSE: 100 MICROGRAMS/MIN FOR A TOTAL OF 144000 MICROGRAMS FOR 56 HOURS
     Route: 041
  6. ATOSIBAN [Suspect]
     Dosage: DAILY DOSE:  UNKNOWN
     Route: 041
  7. ATOSIBAN [Suspect]
     Dosage: DAILY DOSE: 100 MCG/MIN WAS GIVEN FOR A SHORT DURATION
     Route: 041
  8. BETAMETHASONE [Concomitant]
     Indication: MATERNAL THERAPY TO ENHANCE FOETAL LUNG MATURITY
     Dosage: DAILY DOSE: 12 MG IM WITH A REPEAT DOSE OF 12 MG 12 HOURS LATER
     Route: 030

REACTIONS (21)
  - ACUTE RESPIRATORY DISTRESS SYNDROME [None]
  - BLOOD PH INCREASED [None]
  - C-REACTIVE PROTEIN INCREASED [None]
  - CAESAREAN SECTION [None]
  - CYANOSIS [None]
  - DRUG EXPOSURE DURING PREGNANCY [None]
  - DRUG HYPERSENSITIVITY [None]
  - DYSPNOEA [None]
  - FIBRIN D DIMER INCREASED [None]
  - HOT FLUSH [None]
  - LUNG DISORDER [None]
  - LUNG INFILTRATION [None]
  - NASAL CONGESTION [None]
  - ORTHOPNOEA [None]
  - PCO2 DECREASED [None]
  - PO2 DECREASED [None]
  - PREMATURE BABY [None]
  - PULMONARY OEDEMA [None]
  - PULMONARY TOXICITY [None]
  - RESPIRATORY DISTRESS [None]
  - UTERINE HYPERTONUS [None]
